FAERS Safety Report 4384195-4 (Version None)
Quarter: 2004Q2

REPORT INFORMATION
  Report Type: 
  Country: None (occurrence: None)
  Receive Date: 20040623
  Receipt Date: 20040623
  Transmission Date: 20050107
  Serious: Yes (Hospitalization)
  Sender: FDA-Public Use
  Company Number: None

PATIENT
  Sex: Female
  Weight: 82.5547 kg

DRUGS (3)
  1. HYDROCHLOROTHIAZIDE [Suspect]
     Indication: PANCREATITIS
     Dosage: 25 MG DAILY ORAL
     Route: 048
     Dates: start: 20040517, end: 20040618
  2. TAMOXIFEN [Concomitant]
  3. LISINOPRIL [Concomitant]

REACTIONS (1)
  - PANCREATITIS ACUTE [None]
